FAERS Safety Report 8488951-2 (Version None)
Quarter: 2012Q3

REPORT INFORMATION
  Report Type: 
  Country: None (occurrence: None)
  Receive Date: 20120705
  Receipt Date: 20120629
  Transmission Date: 20120928
  Serious: Yes (Hospitalization, Other)
  Sender: FDA-Public Use
  Company Number: US-PFIZER INC-2009303997

PATIENT
  Sex: Male

DRUGS (2)
  1. CHANTIX [Suspect]
     Indication: SMOKING CESSATION THERAPY
     Dosage: UNK
     Route: 048
     Dates: start: 20070501
  2. CHANTIX [Suspect]
     Indication: NICOTINE DEPENDENCE

REACTIONS (17)
  - CHRONIC OBSTRUCTIVE PULMONARY DISEASE [None]
  - ANXIETY [None]
  - VISUAL IMPAIRMENT [None]
  - PARAESTHESIA [None]
  - HYPOAESTHESIA [None]
  - PNEUMONIA [None]
  - SLEEP DISORDER [None]
  - DEPRESSION [None]
  - CARPAL TUNNEL SYNDROME [None]
  - MENTAL DISORDER [None]
  - MALAISE [None]
  - MUSCULAR WEAKNESS [None]
  - EMPHYSEMA [None]
  - BLOOD GLUCOSE INCREASED [None]
  - CARDIOVASCULAR DISORDER [None]
  - TYPE 2 DIABETES MELLITUS [None]
  - NIGHTMARE [None]
